FAERS Safety Report 7012179-6 (Version None)
Quarter: 2010Q3

REPORT INFORMATION
  Report Type: 
  Country: None (occurrence: None)
  Receive Date: 20100924
  Receipt Date: 20100917
  Transmission Date: 20110219
  Serious: Yes (Other)
  Sender: FDA-Public Use
  Company Number: ZA-JNJFOC-20100905618

PATIENT
  Age: 82 Year
  Sex: Female

DRUGS (1)
  1. LEVOFLOXACIN WINTHROP [Suspect]
     Indication: INFLUENZA
     Route: 065

REACTIONS (3)
  - LIGAMENT RUPTURE [None]
  - MUSCLE INJURY [None]
  - OFF LABEL USE [None]
